FAERS Safety Report 15454386 (Version 2)
Quarter: 2018Q4

REPORT INFORMATION
  Report Type: Spontaneous
  Country: CH (occurrence: CH)
  Receive Date: 20181002
  Receipt Date: 20181008
  Transmission Date: 20190204
  Serious: Yes (Death, Hospitalization, Other)
  Sender: FDA-Public Use
  Company Number: CH-ASTRAZENECA-2018SF24126

PATIENT
  Age: 21570 Day
  Sex: Male

DRUGS (18)
  1. NEXIUM [Suspect]
     Active Substance: ESOMEPRAZOLE MAGNESIUM
     Route: 042
     Dates: start: 20180403, end: 20180425
  2. FLUOROURACIL. [Suspect]
     Active Substance: FLUOROURACIL
     Dosage: 4 DF 1ST CYCLE
     Route: 041
     Dates: start: 20180310, end: 20180404
  3. DEXAMETHASONE. [Suspect]
     Active Substance: DEXAMETHASONE
     Dosage: 12 MG IN TOTAL
     Route: 042
     Dates: start: 20180310, end: 20180404
  4. TORASEMIDE [Suspect]
     Active Substance: TORSEMIDE
     Dosage: 15.0MG UNKNOWN
     Route: 065
     Dates: start: 20180406, end: 20180416
  5. OXALIPLATIN. [Suspect]
     Active Substance: OXALIPLATIN
     Dosage: 118.0MG UNKNOWN
     Route: 041
     Dates: start: 20180412, end: 20180412
  6. ONDANSETRON [Concomitant]
     Active Substance: ONDANSETRON
     Dosage: 8 MG IN TOTAL
     Route: 042
     Dates: start: 20180310, end: 20180404
  7. FLUOROURACIL. [Suspect]
     Active Substance: FLUOROURACIL
     Dosage: 3360 MG 2ND CYCLE ; IN TOTAL
     Route: 041
     Dates: start: 20180412, end: 20180412
  8. IRINOTECAN [Suspect]
     Active Substance: IRINOTECAN
     Dosage: 4 DF 1ST CYCLE
     Route: 041
     Dates: start: 20180310, end: 20180404
  9. FILGRASTIM [Concomitant]
     Active Substance: FILGRASTIM
     Dosage: 1 DF = 30 MIO ; IN TOTAL
     Route: 042
     Dates: start: 20180415, end: 20180415
  10. FOLIC ACID. [Concomitant]
     Active Substance: FOLIC ACID
     Dosage: 4 DF 1ST CYCLE
     Dates: start: 20180310, end: 20180404
  11. FOLIC ACID. [Concomitant]
     Active Substance: FOLIC ACID
     Dosage: 2ND CYCLE
     Dates: start: 20180412, end: 20180412
  12. ATROPINE. [Concomitant]
     Active Substance: ATROPINE
     Dosage: 0.5 MG IN TOTAL
     Route: 042
     Dates: start: 20180310, end: 20180404
  13. OXALIPLATIN. [Suspect]
     Active Substance: OXALIPLATIN
     Dosage: 4 DF 1ST CYCLE
     Route: 041
     Dates: start: 20180310, end: 20180404
  14. DEXAMETHASONE. [Suspect]
     Active Substance: DEXAMETHASONE
     Dosage: 12 MG IN TOTAL
     Route: 042
     Dates: start: 20180412, end: 20180412
  15. DEXAMETHASONE. [Suspect]
     Active Substance: DEXAMETHASONE
     Dosage: 12.0MG UNKNOWN
     Route: 042
     Dates: start: 20180402, end: 20180423
  16. ONDANSETRON [Concomitant]
     Active Substance: ONDANSETRON
     Dosage: 8 MG IN TOTAL
     Route: 042
     Dates: start: 20180412, end: 20180412
  17. NEBIVOLOL. [Suspect]
     Active Substance: NEBIVOLOL
     Dosage: 5.0MG UNKNOWN
     Route: 065
     Dates: start: 20180406, end: 20180414
  18. TEMGESIC [Concomitant]
     Active Substance: BUPRENORPHINE HYDROCHLORIDE
     Dosage: 0.2MG UNKNOWN
     Dates: start: 20180403, end: 20180415

REACTIONS (6)
  - Malignant neoplasm progression [Unknown]
  - Haematochezia [Fatal]
  - Intestinal obstruction [Unknown]
  - Thrombocytopenia [Recovered/Resolved]
  - Septic shock [Unknown]
  - Agranulocytosis [Recovered/Resolved]

NARRATIVE: CASE EVENT DATE: 20180415
